FAERS Safety Report 16420958 (Version 1)
Quarter: 2019Q3

REPORT INFORMATION
  Report Type: Spontaneous
  Country: US (occurrence: US)
  Receive Date: 20190611
  Receipt Date: 20190611
  Transmission Date: 20191004
  Serious: Yes (Life-Threatening, Disabling, Congenital Anomaly, Other)
  Sender: FDA-Public Use
  Company Number: None

PATIENT
  Age: 36 Year
  Sex: Female
  Weight: 72 kg

DRUGS (1)
  1. NORLYDA [Suspect]
     Active Substance: NORETHINDRONE
     Indication: BLOOD PRESSURE MEASUREMENT
     Dosage: ?          QUANTITY:28 TABLET(S);?
     Route: 048
     Dates: start: 20180101, end: 20190508

REACTIONS (6)
  - Urinary tract infection [None]
  - Uterine cyst [None]
  - Haemorrhage [None]
  - Hypertension [None]
  - Anaemia [None]
  - Weight increased [None]

NARRATIVE: CASE EVENT DATE: 20180101
